FAERS Safety Report 21098420 (Version 1)
Quarter: 2022Q3

REPORT INFORMATION
  Report Type: Spontaneous
  Country: JP (occurrence: JP)
  Receive Date: 20220719
  Receipt Date: 20220719
  Transmission Date: 20221027
  Serious: Yes (Hospitalization)
  Sender: FDA-Public Use
  Company Number: JP-MYLANLABS-2022M1078426

PATIENT
  Age: 66 Year
  Sex: Female
  Weight: 52.5 kg

DRUGS (5)
  1. PAROXETINE [Suspect]
     Active Substance: PAROXETINE
     Indication: Depression
     Dosage: 12.5 MILLIGRAM, QD, FORMULATION: CONTROLLED RELEASE TABLET
     Route: 065
  2. PAROXETINE [Suspect]
     Active Substance: PAROXETINE
     Dosage: 25 MILLIGRAM, QD, FORMULATION: CONTROLLED RELEASE TABLET
     Route: 065
  3. PAROXETINE [Suspect]
     Active Substance: PAROXETINE
     Dosage: 37.5 MILLIGRAM, QD, FORMULATION: CONTROLLED RELEASE TABLET
     Route: 065
  4. ATENOLOL [Concomitant]
     Active Substance: ATENOLOL
     Indication: Palpitations
     Dosage: 50 MILLIGRAM, QD
     Route: 065
  5. ATENOLOL [Concomitant]
     Active Substance: ATENOLOL
     Dosage: 25 MILLIGRAM, QD
     Route: 065

REACTIONS (1)
  - Activation syndrome [Recovered/Resolved]
